FAERS Safety Report 23148943 (Version 7)
Quarter: 2023Q4

REPORT INFORMATION
  Report Type: Spontaneous
  Country: US (occurrence: US)
  Receive Date: 20231106
  Receipt Date: 20231229
  Transmission Date: 20240110
  Serious: No
  Sender: FDA-Public Use
  Company Number: US-PFIZER INC-PV202300170804

PATIENT
  Age: 15 Year
  Sex: Male
  Weight: 45 kg

DRUGS (2)
  1. GENOTROPIN [Suspect]
     Active Substance: SOMATROPIN
     Indication: Growth hormone deficiency
     Dosage: 1.5 MG, DAILY
     Route: 058
     Dates: start: 20230901, end: 20230901
  2. GENOTROPIN [Suspect]
     Active Substance: SOMATROPIN
     Indication: Noonan syndrome

REACTIONS (9)
  - Wrong technique in device usage process [Unknown]
  - Drug dose omission by device [Unknown]
  - Incorrect dose administered by device [Unknown]
  - Device leakage [Unknown]
  - Product odour abnormal [Unknown]
  - Injection site pain [Unknown]
  - Device issue [Unknown]
  - Device mechanical issue [Unknown]
  - Device information output issue [Unknown]
